FAERS Safety Report 14246645 (Version 4)
Quarter: 2019Q3

REPORT INFORMATION
  Report Type: Report from Study
  Country: CA (occurrence: CA)
  Receive Date: 20171204
  Receipt Date: 20190902
  Transmission Date: 20191004
  Serious: Yes (Hospitalization, Other)
  Sender: FDA-Public Use
  Company Number: CA-ORION CORPORATION ORION PHARMA-TREX2017-3940

PATIENT
  Age: 46 Year
  Sex: Female

DRUGS (11)
  1. INFLUENZA VACCINE [Concomitant]
     Active Substance: INFLUENZA VIRUS VACCINE
     Route: 065
  2. ENBREL [Suspect]
     Active Substance: ETANERCEPT
     Route: 065
     Dates: start: 20110427
  3. FLU SHOT [Concomitant]
     Active Substance: INFLUENZA VIRUS VACCINE
     Route: 065
     Dates: start: 201510
  4. ENBREL [Suspect]
     Active Substance: ETANERCEPT
     Indication: RHEUMATOID ARTHRITIS
     Route: 065
     Dates: start: 20030701
  5. METHOTREXATE (TRADE NAME UNKNOWN) [Suspect]
     Active Substance: METHOTREXATE
     Indication: RHEUMATOID ARTHRITIS
     Route: 065
  6. HYDROXYCHLOROQUINE [Concomitant]
     Active Substance: HYDROXYCHLOROQUINE
     Route: 065
  7. MELOXICAM. [Suspect]
     Active Substance: MELOXICAM
     Indication: RHEUMATOID ARTHRITIS
     Route: 065
  8. PNEUMOVAX 23 [Concomitant]
     Active Substance: PNEUMOCOCCAL VACCINE, POLYVALENT 23
     Route: 065
     Dates: start: 201608
  9. VIT D [Concomitant]
     Active Substance: VITAMIN D NOS
     Route: 065
  10. ERGOCALCIFEROL. [Concomitant]
     Active Substance: ERGOCALCIFEROL
     Route: 065
  11. PNEUMOCOCCAL VACCINE POLYSACH 23V [Concomitant]
     Route: 065

REACTIONS (12)
  - Condition aggravated [Not Recovered/Not Resolved]
  - Rotator cuff syndrome [Recovered/Resolved]
  - Therapeutic product effect incomplete [Unknown]
  - Joint dislocation [Unknown]
  - Hypoaesthesia [Recovering/Resolving]
  - Osteonecrosis [Not Recovered/Not Resolved]
  - Foot deformity [Unknown]
  - Osteoarthritis [Unknown]
  - Rheumatoid arthritis [Not Recovered/Not Resolved]
  - Asthenia [Recovering/Resolving]
  - Tendonitis [Unknown]
  - Hepatic enzyme increased [Unknown]

NARRATIVE: CASE EVENT DATE: 201508
